FAERS Safety Report 5701685-X (Version None)
Quarter: 2008Q2

REPORT INFORMATION
  Report Type: 
  Country: None (occurrence: None)
  Receive Date: 20080409
  Receipt Date: 20080409
  Transmission Date: 20081010
  Serious: No
  Sender: FDA-Public Use
  Company Number: None

PATIENT
  Sex: Male

DRUGS (14)
  1. CASODEX [Suspect]
     Dosage: 50 MG
  2. ZOLADEX [Suspect]
     Dosage: 3.6 MG
  3. CAROZIDE [Concomitant]
  4. CLONAZEPAM [Concomitant]
  5. FLOMAX [Concomitant]
  6. FONDAPARINUX [Concomitant]
  7. FOSAMAX [Concomitant]
  8. LEXAPRO [Concomitant]
  9. LUNESTA [Concomitant]
  10. MULTIPLE VITAMIN [Concomitant]
  11. OXYCONTIN [Concomitant]
  12. TRUVADA [Concomitant]
  13. VIRAMUNE [Concomitant]
  14. WELLBUTRIN [Concomitant]

REACTIONS (1)
  - SUDDEN DEATH [None]
